FAERS Safety Report 7311982-2 (Version None)
Quarter: 2011Q1

REPORT INFORMATION
  Report Type: 
  Country: None (occurrence: None)
  Receive Date: 20110224
  Receipt Date: 20110218
  Transmission Date: 20110831
  Serious: Yes (Disabling, Other)
  Sender: FDA-Public Use
  Company Number: JP-PFIZER INC-2011027401

PATIENT
  Age: 39 Year
  Sex: Female

DRUGS (2)
  1. KAMISHOUYOUSAN [Concomitant]
     Indication: ANXIETY DISORDER
     Dosage: 7.5 G, 3X/DAY
     Route: 048
  2. CHAMPIX [Suspect]
     Indication: NICOTINE DEPENDENCE
     Dosage: 0.5 MG, 1X/DAY
     Route: 048
     Dates: start: 20110205, end: 20110207

REACTIONS (7)
  - DEPERSONALISATION [None]
  - IRRITABILITY [None]
  - AFFECT LABILITY [None]
  - ANXIETY [None]
  - AGGRESSION [None]
  - AGITATION [None]
  - PANIC ATTACK [None]
